FAERS Safety Report 10932633 (Version 1)
Quarter: 2015Q1

REPORT INFORMATION
  Report Type: Spontaneous
  Country: US (occurrence: None)
  Receive Date: 20150319
  Receipt Date: 20150319
  Transmission Date: 20150721
  Serious: Yes (Other)
  Sender: FDA-Public Use
  Company Number: None

PATIENT
  Age: 31 Year
  Sex: Female
  Weight: 52.16 kg

DRUGS (3)
  1. SUBOXONE [Suspect]
     Active Substance: BUPRENORPHINE HYDROCHLORIDE\NALOXONE HYDROCHLORIDE
     Indication: DRUG DEPENDENCE
     Route: 060
     Dates: start: 20140319, end: 20150318
  2. FIORCET [Concomitant]
  3. MOTRIN [Concomitant]
     Active Substance: IBUPROFEN

REACTIONS (1)
  - Glossodynia [None]

NARRATIVE: CASE EVENT DATE: 20150317
